FAERS Safety Report 4978025-7 (Version None)
Quarter: 2006Q2

REPORT INFORMATION
  Report Type: 
  Country: None (occurrence: None)
  Receive Date: 20060414
  Receipt Date: 20060403
  Transmission Date: 20061013
  Serious: Yes (Hospitalization)
  Sender: FDA-Public Use
  Company Number: L06-GER-01332-01

PATIENT
  Age: 17 Year
  Sex: Female

DRUGS (2)
  1. LEVOTHYROXINE SODIUM [Suspect]
     Indication: WEIGHT DECREASED
     Dosage: 800 MCG QD
  2. LEVOTHYROXINE SODIUM [Suspect]
     Indication: WEIGHT DECREASED
     Dosage: 20 MG ONCE

REACTIONS (7)
  - BLOOD THYROID STIMULATING HORMONE DECREASED [None]
  - HYPERHIDROSIS [None]
  - OVERDOSE [None]
  - SUICIDE ATTEMPT [None]
  - TACHYCARDIA [None]
  - THYROXINE INCREASED [None]
  - TREMOR [None]
